FAERS Safety Report 5339412-0 (Version None)
Quarter: 2007Q2

REPORT INFORMATION
  Report Type: 
  Country: None (occurrence: None)
  Receive Date: 20070525
  Receipt Date: 20070515
  Transmission Date: 20071010
  Serious: Yes (Hospitalization)
  Sender: FDA-Public Use
  Company Number: T200700530

PATIENT
  Age: 44 Year
  Sex: Male

DRUGS (3)
  1. METHADONE HCL [Suspect]
     Indication: DRUG DEPENDENCE
     Dosage: SEE IMAGE
     Route: 048
  2. FLUNITRAZEPAM (FLUNITRAZEPAM) [Concomitant]
  3. NEO-MERCAZOLE TAB [Concomitant]

REACTIONS (12)
  - BLOOD PH DECREASED [None]
  - BODY TEMPERATURE DECREASED [None]
  - COMA [None]
  - DRUG TOXICITY [None]
  - HEART RATE INCREASED [None]
  - HYPOREFLEXIA [None]
  - HYPOTONIA [None]
  - MIOSIS [None]
  - OVERDOSE [None]
  - PNEUMONIA ASPIRATION [None]
  - PO2 DECREASED [None]
  - RESPIRATORY FAILURE [None]
